FAERS Safety Report 7552445-9 (Version None)
Quarter: 2011Q2

REPORT INFORMATION
  Report Type: 
  Country: None (occurrence: None)
  Receive Date: 20110616
  Receipt Date: 20110614
  Transmission Date: 20111010
  Serious: Yes (Death, Hospitalization, Disabling, Other)
  Sender: FDA-Public Use
  Company Number: US-AMGEN-USASP2011028039

PATIENT
  Age: 59 Year
  Sex: Male
  Weight: 52.608 kg

DRUGS (26)
  1. NPLATE [Suspect]
     Indication: IDIOPATHIC THROMBOCYTOPENIC PURPURA
     Dosage: 250 A?G, UNK
     Dates: start: 20101026, end: 20110413
  2. CALCIUM+VIT D                      /00944201/ [Concomitant]
  3. ALBUTEROL SULFATE AND IPRATROPIUM BROMIDE [Concomitant]
  4. TYLENOL (CAPLET) [Concomitant]
  5. MORPHINE [Concomitant]
  6. BIAXIN [Concomitant]
  7. GABAPENTIN [Concomitant]
  8. VITAMIN C                          /00008001/ [Concomitant]
  9. PROTONIX [Concomitant]
  10. NEUPOGEN [Concomitant]
  11. THALIDOMIDE [Concomitant]
  12. ZOFRAN [Concomitant]
  13. MILK OF MAGNESIA TAB [Concomitant]
  14. COLACE [Concomitant]
  15. SENOKOT [Concomitant]
  16. MARIJUANA [Concomitant]
  17. DECADRON [Concomitant]
  18. OMEPRAZOLE [Concomitant]
  19. PROCRIT [Concomitant]
  20. KAYEXALATE [Concomitant]
     Dosage: UNK
     Dates: end: 20110215
  21. ACYCLOVIR [Concomitant]
  22. ENEMA                              /01318702/ [Concomitant]
  23. NEUMEGA [Concomitant]
  24. MIRALAX [Concomitant]
  25. CORTICOSTEROIDS [Concomitant]
  26. ATIVAN [Concomitant]

REACTIONS (29)
  - ANAEMIA [None]
  - HYPOKALAEMIA [None]
  - DEPRESSION [None]
  - FAECAL INCONTINENCE [None]
  - HAEMOCHROMATOSIS [None]
  - SWELLING FACE [None]
  - ASTHENIA [None]
  - CONFUSIONAL STATE [None]
  - FEELING HOT [None]
  - RHINORRHOEA [None]
  - CONSTIPATION [None]
  - DYSARTHRIA [None]
  - SEDATION [None]
  - ACTIVITIES OF DAILY LIVING IMPAIRED [None]
  - HYPONATRAEMIA [None]
  - MEMORY IMPAIRMENT [None]
  - ABDOMINAL PAIN UPPER [None]
  - PNEUMONIA [None]
  - FEBRILE NEUTROPENIA [None]
  - HYPERGLYCAEMIA [None]
  - PAIN [None]
  - LETHARGY [None]
  - BONE PAIN [None]
  - DIARRHOEA [None]
  - LEUKOPENIA [None]
  - FATIGUE [None]
  - NEUROPATHY PERIPHERAL [None]
  - AFFECT LABILITY [None]
  - COUGH [None]
